FAERS Safety Report 13974643 (Version 1)
Quarter: 2017Q3

REPORT INFORMATION
  Report Type: Spontaneous
  Country: AU (occurrence: AU)
  Receive Date: 20170915
  Receipt Date: 20170915
  Transmission Date: 20171128
  Serious: Yes (Hospitalization)
  Sender: FDA-Public Use
  Company Number: AU-B.I. PHARMACEUTICALS,INC./RIDGEFIELD-2017-BI-049541

PATIENT
  Age: 57 Year
  Sex: Male

DRUGS (1)
  1. JARDIANCE [Suspect]
     Active Substance: EMPAGLIFLOZIN
     Indication: PRODUCT USED FOR UNKNOWN INDICATION
     Route: 065
     Dates: start: 201705

REACTIONS (14)
  - Diarrhoea [Unknown]
  - Tachycardia [Unknown]
  - Blood pressure systolic decreased [Unknown]
  - Ingrowing nail [Unknown]
  - Dysuria [Unknown]
  - Fibrin D dimer increased [Unknown]
  - Respiratory tract infection [Unknown]
  - Sepsis [Unknown]
  - Vomiting [Unknown]
  - Urinary tract infection [Unknown]
  - Diabetic ketoacidosis [Recovered/Resolved]
  - Cough [Unknown]
  - Blood pressure decreased [Unknown]
  - Oedema peripheral [Unknown]
